FAERS Safety Report 6141922-3 (Version None)
Quarter: 2009Q1

REPORT INFORMATION
  Report Type: 
  Country: None (occurrence: None)
  Receive Date: 20090331
  Receipt Date: 20090331
  Transmission Date: 20090719
  Serious: Yes (Life-Threatening, Hospitalization)
  Sender: FDA-Public Use
  Company Number: None

PATIENT
  Age: 23 Year
  Sex: Female
  Weight: 52.1637 kg

DRUGS (2)
  1. COMPAZINE [Suspect]
     Indication: PROCEDURAL VOMITING
     Dosage: 1-2 3-4 * A DAY PO
     Route: 048
     Dates: start: 19960401, end: 19960401
  2. COMPAZINE [Suspect]
     Indication: PROCEDURAL VOMITING
     Dosage: 1 TWICE A DAY RECTAL
     Route: 054
     Dates: start: 19960401, end: 19960402

REACTIONS (11)
  - CONVULSION [None]
  - DRUG HYPERSENSITIVITY [None]
  - DRUG INEFFECTIVE [None]
  - DYSKINESIA [None]
  - EXTRAOCULAR MUSCLE DISORDER [None]
  - INCORRECT DOSE ADMINISTERED [None]
  - PROCEDURAL PAIN [None]
  - PROCEDURAL VOMITING [None]
  - SPEECH DISORDER [None]
  - SWOLLEN TONGUE [None]
  - VISION BLURRED [None]
